FAERS Safety Report 5479456-1 (Version None)
Quarter: 2007Q4

REPORT INFORMATION
  Report Type: 
  Country: None (occurrence: None)
  Receive Date: 20071008
  Receipt Date: 20070924
  Transmission Date: 20080405
  Serious: Yes (Hospitalization)
  Sender: FDA-Public Use
  Company Number: GR-GENENTECH-226613

PATIENT
  Sex: Male
  Weight: 92 kg

DRUGS (6)
  1. BEVACIZUMAB [Suspect]
     Indication: COLON CANCER
     Dosage: 460 MG, Q2W
     Route: 042
     Dates: start: 20051213, end: 20060321
  2. OXALIPLATIN [Suspect]
     Indication: COLON CANCER
     Dosage: 178 MG, Q2W
     Route: 042
     Dates: start: 20051213
  3. FLUOROURACIL [Suspect]
     Indication: COLON CANCER
     Dosage: 840 MG, 2/WEEK/Q2W
     Route: 042
     Dates: start: 20051213
  4. FLUOROURACIL [Suspect]
     Dosage: 1260 MG, 2/WEEK/Q2W
     Route: 042
     Dates: start: 20051213
  5. LEUCOVORIN [Suspect]
     Indication: COLON CANCER
     Dosage: 420 MG, Q2W
     Route: 042
     Dates: start: 20051213
  6. EPOETIN BETA [Concomitant]
     Indication: DRUG USE FOR UNKNOWN INDICATION

REACTIONS (2)
  - GASTRITIS [None]
  - OESOPHAGITIS [None]
